FAERS Safety Report 16614377 (Version 1)
Quarter: 2019Q3

REPORT INFORMATION
  Report Type: Spontaneous
  Country: FR (occurrence: FR)
  Receive Date: 20190723
  Receipt Date: 20190723
  Transmission Date: 20191004
  Serious: Yes (Hospitalization)
  Sender: FDA-Public Use
  Company Number: FR-ZYDUS-038657

PATIENT
  Age: 88 Year
  Sex: Female
  Weight: 79 kg

DRUGS (8)
  1. DUOPLAVIN [Suspect]
     Active Substance: ASPIRIN\CLOPIDOGREL
     Indication: STENT PLACEMENT
     Dosage: ()
     Route: 048
     Dates: start: 20190214, end: 201903
  2. ATORVASTATIN [Concomitant]
     Active Substance: ATORVASTATIN
  3. HYDROCHLOROTHIAZIDE. [Concomitant]
     Active Substance: HYDROCHLOROTHIAZIDE
  4. CLOPIDOGREL [Suspect]
     Active Substance: CLOPIDOGREL BISULFATE
     Indication: STENT PLACEMENT
     Dosage: ()
     Route: 048
     Dates: start: 201903, end: 20190524
  5. ALLOPURINOL/ALLOPURINOL SODIUM [Concomitant]
  6. LANSOPRAZOLE. [Suspect]
     Active Substance: LANSOPRAZOLE
     Indication: PRODUCT USED FOR UNKNOWN INDICATION
     Route: 048
     Dates: start: 201902, end: 20190524
  7. GLYCERYL TRINITRATE [Concomitant]
     Active Substance: NITROGLYCERIN
  8. NICARDIPINE [Concomitant]
     Active Substance: NICARDIPINE

REACTIONS (3)
  - Colitis microscopic [Recovered/Resolved]
  - Renal failure [Recovering/Resolving]
  - Hypokalaemia [Recovered/Resolved]

NARRATIVE: CASE EVENT DATE: 201903
